FAERS Safety Report 10521264 (Version 3)
Quarter: 2014Q4

REPORT INFORMATION
  Report Type: Spontaneous
  Country: DE (occurrence: DE)
  Receive Date: 20141016
  Receipt Date: 20141024
  Transmission Date: 20150528
  Serious: Yes (Other)
  Sender: FDA-Public Use
  Company Number: DE-AMGEN-DEUSP2014068703

PATIENT
  Age: 44 Year
  Sex: Female
  Weight: 72 kg

DRUGS (1)
  1. ENBREL [Suspect]
     Active Substance: ETANERCEPT
     Indication: RHEUMATOID ARTHRITIS
     Dosage: 50 MG, WEEKLY
     Route: 058
     Dates: start: 20140818, end: 20140915

REACTIONS (13)
  - Pain [Unknown]
  - Panniculitis [Recovered/Resolved]
  - Pallor [Unknown]
  - Injection site erythema [Recovered/Resolved]
  - Dermatitis allergic [Recovered/Resolved]
  - Fatigue [Not Recovered/Not Resolved]
  - Inflammation [Recovered/Resolved]
  - Erythema [Recovered/Resolved]
  - Injection site swelling [Recovered/Resolved]
  - Laboratory test abnormal [Unknown]
  - Injection site reaction [Recovered/Resolved]
  - Burning sensation [Unknown]
  - Pruritus [Unknown]

NARRATIVE: CASE EVENT DATE: 2014
